FAERS Safety Report 6666882-8 (Version None)
Quarter: 2010Q2

REPORT INFORMATION
  Report Type: 
  Country: None (occurrence: None)
  Receive Date: 20100402
  Receipt Date: 20100402
  Transmission Date: 20101027
  Serious: Yes (Hospitalization)
  Sender: FDA-Public Use
  Company Number: None

PATIENT
  Sex: Male
  Weight: 66.72 kg

DRUGS (1)
  1. GEMCITABINE HCL [Suspect]
     Dosage: 388 MG

REACTIONS (6)
  - CHILLS [None]
  - DYSURIA [None]
  - LETHARGY [None]
  - MALAISE [None]
  - POLLAKIURIA [None]
  - URINARY TRACT INFECTION [None]
